FAERS Safety Report 16339866 (Version 6)
Quarter: 2019Q4

REPORT INFORMATION
  Report Type: Report from Study
  Country: US (occurrence: US)
  Receive Date: 20190521
  Receipt Date: 20191212
  Transmission Date: 20200122
  Serious: No
  Sender: FDA-Public Use
  Company Number: PHEH2019US021278

PATIENT
  Sex: Male

DRUGS (1)
  1. ENTRESTO [Suspect]
     Active Substance: SACUBITRIL\VALSARTAN
     Indication: CARDIAC FAILURE
     Dosage: UNK
     Route: 048

REACTIONS (7)
  - Muscle strain [Unknown]
  - Weight loss poor [Unknown]
  - Dizziness [Unknown]
  - Weight increased [Unknown]
  - Diarrhoea [Unknown]
  - Weight fluctuation [Unknown]
  - Drug ineffective [Unknown]
